FAERS Safety Report 6682843-7 (Version None)
Quarter: 2010Q2

REPORT INFORMATION
  Report Type: 
  Country: None (occurrence: None)
  Receive Date: 20100415
  Receipt Date: 20100412
  Transmission Date: 20101027
  Serious: Yes (Hospitalization)
  Sender: FDA-Public Use
  Company Number: A0789235A

PATIENT
  Age: 61 Year
  Sex: Male
  Weight: 115.9 kg

DRUGS (4)
  1. AVANDIA [Suspect]
     Dosage: 4MG PER DAY
     Route: 048
     Dates: start: 20060701, end: 20070501
  2. HYDROCHLOROTHIAZIDE [Concomitant]
  3. VYTORIN [Concomitant]
  4. LISINOPRIL [Concomitant]

REACTIONS (3)
  - CARDIAC DISORDER [None]
  - CORONARY ARTERY DISEASE [None]
  - MYOCARDIAL INFARCTION [None]
